FAERS Safety Report 8176467-2 (Version None)
Quarter: 2012Q1

REPORT INFORMATION
  Report Type: 
  Country: None (occurrence: None)
  Receive Date: 20120301
  Receipt Date: 20120224
  Transmission Date: 20120608
  Serious: Yes (Other)
  Sender: FDA-Public Use
  Company Number: US-PFIZER INC-2012051120

PATIENT
  Sex: Female

DRUGS (9)
  1. LASIX [Concomitant]
     Dosage: UNK
  2. FOLIC ACID [Concomitant]
     Dosage: UNK
  3. RANEXA [Concomitant]
     Dosage: UNK
  4. LEVOXYL [Concomitant]
     Dosage: UNK
  5. CARVEDILOL [Concomitant]
     Dosage: UNK
  6. DIOVAN [Concomitant]
     Dosage: UNK
  7. AMIODARONE HCL [Suspect]
     Dosage: UNK
  8. WARFARIN [Concomitant]
     Dosage: UNK
  9. VITAMIN D [Concomitant]
     Dosage: UNK

REACTIONS (7)
  - GASTROINTESTINAL HAEMORRHAGE [None]
  - ASTHENIA [None]
  - RENAL IMPAIRMENT [None]
  - RENAL DISORDER [None]
  - NAUSEA [None]
  - MALAISE [None]
  - DIARRHOEA [None]
